FAERS Safety Report 4443506-1 (Version None)
Quarter: 2004Q3

REPORT INFORMATION
  Report Type: 
  Country: None (occurrence: None)
  Receive Date: 20040901
  Receipt Date: 20040826
  Transmission Date: 20050211
  Serious: Yes (Death, Hospitalization)
  Sender: FDA-Public Use
  Company Number: 2004-03263

PATIENT
  Age: 78 Year
  Sex: Female
  Weight: 45.4 kg

DRUGS (6)
  1. OXYTROL [Suspect]
     Dosage: 1 PATCH, 2/WEEK, TRANSDERMAL
     Route: 062
     Dates: start: 20040224, end: 20040601
  2. CLORAZEPATE DIPOTASSIUM [Concomitant]
  3. HYDROCHLOROTHIAZIDE [Concomitant]
  4. LOTENSIN [Concomitant]
  5. SYNTHROID [Concomitant]
  6. PREMPRO [Concomitant]

REACTIONS (3)
  - CEREBROVASCULAR ACCIDENT [None]
  - CONVULSION [None]
  - RESPIRATORY FAILURE [None]
